FAERS Safety Report 24991883 (Version 3)
Quarter: 2025Q2

REPORT INFORMATION
  Report Type: Report from Study
  Country: US (occurrence: US)
  Receive Date: 20250220
  Receipt Date: 20250414
  Transmission Date: 20250716
  Serious: Yes (Hospitalization, Other)
  Sender: AIMMUNE
  Company Number: US-VIOKACE LLC-2025AIMT00151

PATIENT

DRUGS (2)
  1. VIOKACE [Suspect]
     Active Substance: PANCRELIPASE AMYLASE\PANCRELIPASE LIPASE\PANCRELIPASE PROTEASE
     Indication: Pancreatic failure
     Route: 048
  2. VIOKACE [Suspect]
     Active Substance: PANCRELIPASE AMYLASE\PANCRELIPASE LIPASE\PANCRELIPASE PROTEASE
     Route: 048

REACTIONS (6)
  - Myocardial infarction [Unknown]
  - Impaired gastric emptying [Unknown]
  - Gastrectomy [Unknown]
  - Pancreaticoduodenectomy [Unknown]
  - Amputation [Unknown]
  - Treatment noncompliance [Unknown]
